FAERS Safety Report 7734575-1 (Version None)
Quarter: 2011Q3

REPORT INFORMATION
  Report Type: 
  Country: None (occurrence: None)
  Receive Date: 20110907
  Receipt Date: 20110829
  Transmission Date: 20111222
  Serious: Yes (Other)
  Sender: FDA-Public Use
  Company Number: AU-ASTRAZENECA-2011SE46821

PATIENT
  Sex: Female
  Weight: 66 kg

DRUGS (2)
  1. SYMBICORT [Suspect]
     Route: 055
  2. SYMBICORT [Suspect]
     Indication: ASTHMA
     Dosage: 200/6 UG 5 PUFFS DAILY
     Route: 055
     Dates: end: 20110812

REACTIONS (2)
  - DRUG DOSE OMISSION [None]
  - CONDITION AGGRAVATED [None]
